FAERS Safety Report 5773107-4 (Version None)
Quarter: 2008Q2

REPORT INFORMATION
  Report Type: 
  Country: None (occurrence: None)
  Receive Date: 20080527
  Receipt Date: 20080513
  Transmission Date: 20081010
  Serious: Yes (Other)
  Sender: FDA-Public Use
  Company Number: AEUSA200800119

PATIENT
  Age: 34 Year
  Sex: Female
  Weight: 47 kg

DRUGS (12)
  1. GAMUNEX [Suspect]
     Indication: HISTIOCYTOSIS HAEMATOPHAGIC
     Dosage: 20 GM; QD; IV
     Route: 042
     Dates: start: 20080430, end: 20080504
  2. GAMUNEX [Suspect]
     Indication: SYSTEMIC INFLAMMATORY RESPONSE SYNDROME
     Dosage: 20 GM; QD; IV
     Route: 042
     Dates: start: 20080430, end: 20080504
  3. PRILOSCE / 00661201/ (CON.) [Concomitant]
  4. TYLENOL /00020001/ (CON.) [Concomitant]
  5. ACYCLOVIR /00587302/ (CON.) [Concomitant]
  6. CLINDAMYCIN (CON.) [Concomitant]
  7. BENADRYL /01563701/ (CON.) [Concomitant]
  8. IPRATROPIUM (CON.) [Concomitant]
  9. LEVOFLOXACIN (CON.) [Concomitant]
  10. NITROGLYCERIN (CON.) [Concomitant]
  11. SOLUMEDROL (CON.) [Concomitant]
  12. POTASSIUM CHLORIDE (CON.) [Concomitant]

REACTIONS (3)
  - ANTIBODY TEST POSITIVE [None]
  - BLOOD CREATINE PHOSPHOKINASE INCREASED [None]
  - COOMBS TEST POSITIVE [None]
